FAERS Safety Report 7752907-5 (Version None)
Quarter: 2011Q3

REPORT INFORMATION
  Report Type: 
  Country: None (occurrence: None)
  Receive Date: 20110915
  Receipt Date: 20110906
  Transmission Date: 20111222
  Serious: Yes (Other)
  Sender: FDA-Public Use
  Company Number: US-BAYER-201038696NA

PATIENT
  Age: 20 Year
  Sex: Female
  Weight: 68.027 kg

DRUGS (2)
  1. YAZ [Suspect]
     Indication: PREMENSTRUAL SYNDROME
     Dates: start: 20080401, end: 20091001
  2. YAZ [Suspect]
     Indication: ORAL CONTRACEPTION

REACTIONS (3)
  - CHOLECYSTITIS INFECTIVE [None]
  - CHOLECYSTITIS [None]
  - CHOLELITHIASIS [None]
